FAERS Safety Report 12366993 (Version 2)
Quarter: 2016Q2

REPORT INFORMATION
  Report Type: Spontaneous
  Country: US (occurrence: US)
  Receive Date: 20160513
  Receipt Date: 20160525
  Transmission Date: 20160815
  Serious: Yes (Hospitalization, Other)
  Sender: FDA-Public Use
  Company Number: US-DRREDDYS-USA/USA/16/0079672

PATIENT
  Age: 34 Year
  Sex: Female

DRUGS (4)
  1. SERTRALINE HYDROCHLORIDE. [Interacting]
     Active Substance: SERTRALINE HYDROCHLORIDE
     Indication: DEPRESSION
     Route: 048
  2. BUPROPION. [Interacting]
     Active Substance: BUPROPION
     Indication: DEPRESSION
     Route: 048
  3. SERTRALINE HYDROCHLORIDE. [Suspect]
     Active Substance: SERTRALINE HYDROCHLORIDE
     Indication: GENERALISED ANXIETY DISORDER
     Route: 048
  4. BUPROPION. [Interacting]
     Active Substance: BUPROPION
     Indication: GENERALISED ANXIETY DISORDER
     Route: 048

REACTIONS (4)
  - Tooth fracture [Unknown]
  - Drug interaction [Unknown]
  - Bruxism [Unknown]
  - Dental caries [Unknown]
